FAERS Safety Report 6652993-X (Version None)
Quarter: 2010Q1

REPORT INFORMATION
  Report Type: 
  Country: None (occurrence: None)
  Receive Date: 20100326
  Receipt Date: 20100315
  Transmission Date: 20100710
  Serious: Yes (Other)
  Sender: FDA-Public Use
  Company Number: PHEH2008US03141

PATIENT
  Sex: Female

DRUGS (26)
  1. AREDIA [Suspect]
  2. ZOMETA [Suspect]
  3. LASIX [Concomitant]
  4. CORTISONE ACETATE [Concomitant]
  5. MORPHINE [Concomitant]
  6. METOPROLOL [Concomitant]
  7. INSULIN [Concomitant]
  8. SPIRIVA [Concomitant]
  9. ZESTRIL [Concomitant]
  10. DILANTIN                                /AUS/ [Concomitant]
  11. BECONASE [Concomitant]
  12. ZOFRAN [Concomitant]
  13. PEPCID [Concomitant]
  14. HEPARIN [Concomitant]
  15. ALBUTEROL [Concomitant]
  16. ATIVAN [Concomitant]
  17. COMBIVENT                               /GFR/ [Concomitant]
  18. PROVENTIL [Concomitant]
  19. ROCEPHIN [Concomitant]
  20. BECONASE AQUA [Concomitant]
  21. LACTINEX [Concomitant]
  22. MEGACE [Concomitant]
  23. K-LYTE                                  /USA/ [Concomitant]
  24. SCOPOLAMINE [Concomitant]
  25. REGLAN [Concomitant]
  26. GEVRABON [Concomitant]

REACTIONS (22)
  - ABDOMINAL PAIN [None]
  - ANXIETY [None]
  - BONE DISORDER [None]
  - BREAST CANCER [None]
  - CLOSTRIDIUM TEST POSITIVE [None]
  - CONVULSION [None]
  - DEBRIDEMENT [None]
  - DIARRHOEA [None]
  - DYSPHAGIA [None]
  - EMOTIONAL DISTRESS [None]
  - HYPOPHOSPHATAEMIA [None]
  - INFECTION [None]
  - INJURY [None]
  - METABOLIC ALKALOSIS [None]
  - OESOPHAGOGASTRODUODENOSCOPY [None]
  - OSTEONECROSIS [None]
  - PAIN [None]
  - PHYSICAL DISABILITY [None]
  - RESPIRATORY FAILURE [None]
  - SCAR [None]
  - SMALL INTESTINAL OBSTRUCTION [None]
  - TOOTH EXTRACTION [None]
